FAERS Safety Report 9398553 (Version 2)
Quarter: 2013Q3

REPORT INFORMATION
  Report Type: Spontaneous
  Country: IT (occurrence: IT)
  Receive Date: 20130712
  Receipt Date: 20130725
  Transmission Date: 20140515
  Serious: Yes (Hospitalization, Other)
  Sender: FDA-Public Use
  Company Number: IT-BRISTOL-MYERS SQUIBB COMPANY-19097583

PATIENT
  Age: 61 Year
  Sex: Female

DRUGS (5)
  1. COUMADIN TABS 5 MG [Suspect]
     Indication: DEEP VEIN THROMBOSIS
     Dosage: 1DF:1 UNIT?INTER:21JUN2013
     Route: 048
     Dates: start: 20130101
  2. AUGMENTIN [Concomitant]
     Dosage: 1DF:2 UNITS OF AUGMENTIN 875/125 MG POWDER FOR ORAL SUSPENSION
     Route: 048
  3. SERETIDE [Concomitant]
  4. SPIRIVA [Concomitant]
  5. KLACID [Concomitant]
     Dosage: 1DF:2 UNITS OF KLACID 500 MG TAB
     Route: 048

REACTIONS (2)
  - Epistaxis [Unknown]
  - Overdose [Unknown]
